FAERS Safety Report 19585104 (Version 1)
Quarter: 2021Q3

REPORT INFORMATION
  Report Type: Spontaneous
  Country: US (occurrence: US)
  Receive Date: 20210720
  Receipt Date: 20210720
  Transmission Date: 20211014
  Serious: No
  Sender: FDA-Public Use
  Company Number: US-ROCHE-2747277

PATIENT
  Age: 76 Year

DRUGS (1)
  1. TECENTRIQ [Suspect]
     Active Substance: ATEZOLIZUMAB
     Indication: NEUROENDOCRINE CARCINOMA
     Route: 065

REACTIONS (3)
  - Local reaction [Recovered/Resolved]
  - Skin disorder [Unknown]
  - Mucosal disorder [Unknown]
